FAERS Safety Report 7164264-6 (Version None)
Quarter: 2010Q4

REPORT INFORMATION
  Report Type: 
  Country: None (occurrence: None)
  Receive Date: 20101215
  Receipt Date: 20101206
  Transmission Date: 20110411
  Serious: Yes (Other)
  Sender: FDA-Public Use
  Company Number: US-WATSON-2010-15828

PATIENT

DRUGS (6)
  1. FLUOXETINE [Suspect]
     Indication: ANTIDEPRESSANT THERAPY
     Dosage: UNK
     Route: 063
  2. FLUOXETINE [Suspect]
     Dosage: UNK
     Route: 064
  3. BUSPIRONE HYDROCHLORIDE [Suspect]
     Indication: PRODUCT USED FOR UNKNOWN INDICATION
     Dosage: UNK
     Route: 063
  4. BUSPIRONE HYDROCHLORIDE [Suspect]
     Dosage: UNK
     Route: 064
  5. CARBAMAZEPINE [Suspect]
     Indication: PRODUCT USED FOR UNKNOWN INDICATION
     Dosage: UNK
     Route: 063
  6. CARBAMAZEPINE [Suspect]
     Dosage: UNK
     Route: 064

REACTIONS (1)
  - CONVULSION [None]
